FAERS Safety Report 8595552-4 (Version None)
Quarter: 2012Q3

REPORT INFORMATION
  Report Type: 
  Country: None (occurrence: None)
  Receive Date: 20120815
  Receipt Date: 20120808
  Transmission Date: 20120928
  Serious: Yes (Hospitalization)
  Sender: FDA-Public Use
  Company Number: US-US-EMD SERONO, INC.-7153690

PATIENT
  Sex: Male

DRUGS (1)
  1. REBIF [Suspect]
     Indication: PRODUCT USED FOR UNKNOWN INDICATION
     Route: 058
     Dates: start: 20090714

REACTIONS (6)
  - DEHYDRATION [None]
  - PAIN [None]
  - INJECTION SITE ERYTHEMA [None]
  - NIGHTMARE [None]
  - RESTLESSNESS [None]
  - INJECTION SITE DISCOLOURATION [None]
